FAERS Safety Report 8574205-2 (Version None)
Quarter: 2012Q3

REPORT INFORMATION
  Report Type: 
  Country: None (occurrence: None)
  Receive Date: 20120806
  Receipt Date: 20111030
  Transmission Date: 20120928
  Serious: Yes (Life-Threatening, Other)
  Sender: FDA-Public Use
  Company Number: DE-CELGENEUS-062-21880-12060616

PATIENT
  Age: 76 Year
  Sex: Female
  Weight: 73 kg

DRUGS (4)
  1. DEXAMETHASONE [Concomitant]
     Dosage: 40 MILLIGRAM
     Route: 065
     Dates: start: 20110317, end: 20110808
  2. ZOMETA [Concomitant]
     Route: 065
  3. DEXAMETHASONE [Concomitant]
     Dosage: HIGH DOSE
     Route: 065
     Dates: start: 20110901
  4. REVLIMID [Suspect]
     Dosage: 15 MILLIGRAM
     Route: 048
     Dates: start: 20110317, end: 20110808

REACTIONS (6)
  - GRANULOCYTOPENIA [None]
  - BONE PAIN [None]
  - ANAEMIA [None]
  - ASTHENIA [None]
  - LEUKOPENIA [None]
  - THROMBOCYTOPENIA [None]
